FAERS Safety Report 5080479-5 (Version None)
Quarter: 2006Q3

REPORT INFORMATION
  Report Type: 
  Country: None (occurrence: None)
  Receive Date: 20060815
  Receipt Date: 20010913
  Transmission Date: 20061208
  Serious: Yes (Hospitalization)
  Sender: FDA-Public Use
  Company Number: US-SOLVAY-00201003875

PATIENT
  Age: 23523 Day
  Sex: Male
  Weight: 94.1 kg

DRUGS (5)
  1. ASPIRIN [Concomitant]
     Indication: PROPHYLAXIS
     Dosage: DAILY DOSE: 81 MG.
     Route: 048
  2. ACEON [Suspect]
     Indication: HYPERTENSION
     Dosage: DAILY DOSE: 4 MG.
     Route: 048
     Dates: start: 20010530, end: 20010826
  3. IMDUR [Concomitant]
     Indication: ANGINA PECTORIS
     Dosage: DAILY DOSE: 60 MG.
     Route: 048
  4. NORVASC [Concomitant]
     Indication: HYPERTENSION
     Dosage: DAILY DOSE: 5 MG.
     Route: 048
  5. TOPROL-XL [Concomitant]
     Indication: HYPERTENSION
     Dosage: DAILY DOSE: 50 MG.
     Route: 048

REACTIONS (11)
  - ANAEMIA [None]
  - BLADDER CANCER [None]
  - CAROTID ARTERY STENOSIS [None]
  - DIABETES MELLITUS [None]
  - HYPOALBUMINAEMIA [None]
  - MYOCARDIAL ISCHAEMIA [None]
  - PROSTATIC SPECIFIC ANTIGEN INCREASED [None]
  - RENAL CELL CARCINOMA STAGE UNSPECIFIED [None]
  - RENAL FAILURE [None]
  - STRESS [None]
  - VITILIGO [None]
